FAERS Safety Report 8885080 (Version 1)
Quarter: 2012Q4

REPORT INFORMATION
  Report Type: 
  Country: DK (occurrence: IT)
  Receive Date: 20121102
  Receipt Date: 20121102
  Transmission Date: 20130627
  Serious: Yes (Hospitalization)
  Sender: FDA-Public Use
  Company Number: IT-FRI-1000040011

PATIENT
  Age: 17 Year
  Sex: Male

DRUGS (2)
  1. CITALOPRAM [Suspect]
     Dosage: 20 mg
     Route: 048
     Dates: start: 20110918, end: 20120917
  2. QUETIAPINE FUMARATE [Concomitant]

REACTIONS (2)
  - Activation syndrome [Recovering/Resolving]
  - Off label use [Recovering/Resolving]
